FAERS Safety Report 18286158 (Version 2)
Quarter: 2022Q4

REPORT INFORMATION
  Report Type: Spontaneous
  Country: DE (occurrence: DE)
  Receive Date: 20200919
  Receipt Date: 20221020
  Transmission Date: 20230113
  Serious: Yes (Hospitalization)
  Sender: FDA-Public Use
  Company Number: DE-ADRED-05251-01

PATIENT
  Age: 86 Year
  Sex: Female
  Weight: 60 kg

DRUGS (3)
  1. METOPROLOL [Suspect]
     Active Substance: METOPROLOL
     Indication: Product used for unknown indication
     Dosage: 100 MG (0.5-0-0-0)
     Route: 048
  2. CARBIDOPA\LEVODOPA [Suspect]
     Active Substance: CARBIDOPA\LEVODOPA
     Indication: Product used for unknown indication
     Dosage: 25/100 MG, TID (1.5-1.5-1.5-0)
     Route: 048
  3. L-THYROXIN-NATRIUM [Concomitant]
     Indication: Product used for unknown indication
     Dosage: 75 UG, QD (1-0-0-0)
     Route: 048

REACTIONS (5)
  - Mucosal haemorrhage [Recovering/Resolving]
  - Musculoskeletal pain [Recovering/Resolving]
  - Fracture [Recovering/Resolving]
  - General physical health deterioration [Recovering/Resolving]
  - Fall [Recovered/Resolved]
